FAERS Safety Report 7591110 (Version 2)
Quarter: 2013Q1

REPORT INFORMATION
  Report Type: Spontaneous
  Country: US (occurrence: US)
  Receive Date: 20100917
  Receipt Date: 20130313
  Transmission Date: 20140127
  Serious: Yes (Other)
  Sender: FDA-Public Use
  Company Number: US-RB-015134-10

PATIENT
  Sex: Female

DRUGS (4)
  1. SUBOXONE [Suspect]
     Route: 064
     Dates: start: 20091101, end: 20091216
  2. SUBOXONE [Suspect]
     Indication: DRUG DEPENDENCE
     Route: 064
     Dates: start: 20091216, end: 20100320
  3. SUBUTEX [Suspect]
     Indication: DRUG DEPENDENCE
     Dosage: TAPERING DOSES DOWN TO 1/2 MG DAILY
     Route: 064
     Dates: start: 20100320, end: 20100721
  4. TOPAMAX [Suspect]
     Indication: MIGRAINE
     Route: 065
     Dates: start: 20091101, end: 20091216

REACTIONS (2)
  - Foetal exposure during pregnancy [Recovered/Resolved]
  - Meconium stain [Recovered/Resolved]
